FAERS Safety Report 6495877-2 (Version None)
Quarter: 2009Q4

REPORT INFORMATION
  Report Type: 
  Country: None (occurrence: None)
  Receive Date: 20091209
  Receipt Date: 20091125
  Transmission Date: 20100525
  Serious: Yes (Disabling)
  Sender: FDA-Public Use
  Company Number: UKP09000081

PATIENT
  Age: 75 Year
  Sex: Female

DRUGS (6)
  1. ACTONEL [Suspect]
     Indication: OSTEOPOROTIC FRACTURE
     Dosage: ORAL
     Route: 048
  2. PERINDOPRIL (PERINDOPRIL) UNKNOWN [Suspect]
     Dates: start: 20021202
  3. PRAVASTATIN SODIUM [Suspect]
     Dates: start: 20000801
  4. CALCICHEW /00108001/ (CALCIUM CARBONATE) [Concomitant]
  5. DOCUSATE (DOCUSATE) [Concomitant]
  6. LEVOTHYROXINE SODIUM [Concomitant]

REACTIONS (2)
  - PERIPHERAL SENSORY NEUROPATHY [None]
  - WALKING DISABILITY [None]
